FAERS Safety Report 25262182 (Version 2)
Quarter: 2025Q2

REPORT INFORMATION
  Report Type: Report from Study
  Country: US (occurrence: US)
  Receive Date: 20250502
  Receipt Date: 20250527
  Transmission Date: 20250717
  Serious: Yes (Other)
  Sender: GILEAD
  Company Number: US-GILEAD-2025-0712235

PATIENT
  Sex: Female

DRUGS (40)
  1. AZTREONAM LYSINE [Suspect]
     Active Substance: AZTREONAM LYSINE
     Indication: Cystic fibrosis
     Dosage: INHALE 1 VIAL (75 MG) VIA ALTERA NEBULIZER THREE TIMES DAILY. ALTERNATE 28 DAYS ON AND 28 DAYS OFF.
     Route: 055
  2. AZTREONAM LYSINE [Suspect]
     Active Substance: AZTREONAM LYSINE
     Indication: Bacterial disease carrier
  3. PULMOZYME [Concomitant]
     Active Substance: DORNASE ALFA
  4. TOBRAMYCIN [Concomitant]
     Active Substance: TOBRAMYCIN
  5. LAMICTAL ODT [Concomitant]
     Active Substance: LAMOTRIGINE
  6. NEURONTIN [Concomitant]
     Active Substance: GABAPENTIN
  7. MILK OF MAGNESIA [Concomitant]
     Active Substance: MAGNESIUM HYDROXIDE
  8. DIAZEPAM [Concomitant]
     Active Substance: DIAZEPAM
  9. FAMOTIDINE [Concomitant]
     Active Substance: FAMOTIDINE
  10. SUCRALFATE [Concomitant]
     Active Substance: SUCRALFATE
  11. GABAPENTIN [Concomitant]
     Active Substance: GABAPENTIN
  12. VITAMIN D3 [Concomitant]
     Active Substance: CHOLECALCIFEROL
  13. ALBUTEROL SULFATE [Concomitant]
     Active Substance: ALBUTEROL SULFATE
  14. ASCORBIC ACID [Concomitant]
     Active Substance: ASCORBIC ACID
  15. CUVITRU [Concomitant]
     Active Substance: HUMAN IMMUNOGLOBULIN G
  16. LEVOCARNITINE [Concomitant]
     Active Substance: LEVOCARNITINE
  17. IRON [Concomitant]
     Active Substance: IRON
  18. MAXEPA FORTE [Concomitant]
  19. SUPER MULTIPLE [Concomitant]
  20. TOBRAMYCIN SULFATE [Concomitant]
     Active Substance: TOBRAMYCIN SULFATE
  21. CALCITRIOL [Concomitant]
     Active Substance: CALCITRIOL
  22. ACETYLCYSTEINE [Concomitant]
     Active Substance: ACETYLCYSTEINE
  23. COCONUT OIL [Concomitant]
     Active Substance: COCONUT OIL
  24. HIZENTRA [Concomitant]
     Active Substance: HUMAN IMMUNOGLOBULIN G
  25. TYLENOL EXTRA STRENGTH [Concomitant]
     Active Substance: ACETAMINOPHEN
  26. NASONEX [Concomitant]
     Active Substance: MOMETASONE FUROATE
  27. PREVACID [Concomitant]
     Active Substance: LANSOPRAZOLE
  28. BACLOFEN [Concomitant]
     Active Substance: BACLOFEN
  29. CULTURELLE [Concomitant]
     Active Substance: LACTOBACILLUS RHAMNOSUS
  30. GAS-X TONGUE TWISTERS [Concomitant]
  31. MOTRIN [Concomitant]
     Active Substance: IBUPROFEN
  32. TOBI [Concomitant]
     Active Substance: TOBRAMYCIN
  33. POLY VI SOL [VITAMINS NOS] [Concomitant]
  34. LAMICTAL [Concomitant]
     Active Substance: LAMOTRIGINE
  35. FLOVENT HFA [Concomitant]
     Active Substance: FLUTICASONE PROPIONATE
  36. ALUMINUM HYDROXIDE\MAGNESIUM CARBONATE [Concomitant]
     Active Substance: ALUMINUM HYDROXIDE\MAGNESIUM CARBONATE
  37. FLUTICASONE PROPIONATE [Concomitant]
     Active Substance: FLUTICASONE PROPIONATE
  38. CARAFATE [Concomitant]
     Active Substance: SUCRALFATE
  39. RECTIV [Concomitant]
     Active Substance: NITROGLYCERIN
  40. EPINEPHRINE [Concomitant]
     Active Substance: EPINEPHRINE

REACTIONS (3)
  - Polycystic ovarian syndrome [Unknown]
  - Endometriosis [Unknown]
  - Nasopharyngitis [Unknown]
